FAERS Safety Report 18278775 (Version 5)
Quarter: 2021Q2

REPORT INFORMATION
  Report Type: Report from Study
  Country: IT (occurrence: IT)
  Receive Date: 20200917
  Receipt Date: 20210603
  Transmission Date: 20210717
  Serious: Yes (Other)
  Sender: FDA-Public Use
  Company Number: IT-INCYTE CORPORATION-2019IN001249

PATIENT

DRUGS (10)
  1. FEMARA [Concomitant]
     Active Substance: LETROZOLE
     Indication: PRODUCT USED FOR UNKNOWN INDICATION
     Dosage: 2.5 MG, UNK
     Route: 065
     Dates: start: 20171219
  2. JAKAVI [Suspect]
     Active Substance: RUXOLITINIB
     Indication: MYELOFIBROSIS
     Dosage: 30 OT, QD
     Route: 065
     Dates: start: 20171219, end: 20180208
  3. SIDERAL FORTE [Concomitant]
     Active Substance: ASCORBIC ACID\FERRIC PYROPHOSPHATE
     Indication: PRODUCT USED FOR UNKNOWN INDICATION
     Dosage: 2 OT, UNK
     Route: 065
     Dates: start: 20171219
  4. JAKAVI [Suspect]
     Active Substance: RUXOLITINIB
     Dosage: 10 OT QD
     Route: 065
     Dates: start: 20180530, end: 20191013
  5. JAKAVI [Suspect]
     Active Substance: RUXOLITINIB
     Dosage: 5 OT, QD
     Route: 065
     Dates: start: 20180327, end: 20180510
  6. CARDIOASPIRIN [Concomitant]
     Active Substance: ASPIRIN
     Indication: PRODUCT USED FOR UNKNOWN INDICATION
     Dosage: 100 MG, UNK
     Route: 065
     Dates: start: 20171219
  7. JAKAVI [Suspect]
     Active Substance: RUXOLITINIB
     Dosage: 10 OT, QD
     Route: 065
     Dates: start: 20180209, end: 20180326
  8. ZYLORIC [Concomitant]
     Active Substance: ALLOPURINOL
     Indication: PRODUCT USED FOR UNKNOWN INDICATION
     Dosage: 300 MG, UNK
     Route: 065
     Dates: start: 20171219
  9. JAKAVI [Suspect]
     Active Substance: RUXOLITINIB
     Dosage: 20 OT, QD
     Route: 065
     Dates: start: 20191014
  10. FERTIFOL [Concomitant]
     Active Substance: FOLIC ACID
     Indication: PRODUCT USED FOR UNKNOWN INDICATION
     Dosage: 2 OT, UNK
     Route: 065
     Dates: start: 2014

REACTIONS (22)
  - Anaemia [Unknown]
  - Azotaemia [Unknown]
  - Mean platelet volume increased [Unknown]
  - Red blood cell count decreased [Unknown]
  - Basophil count decreased [Unknown]
  - Lymphocyte count increased [Unknown]
  - Blood alkaline phosphatase decreased [Unknown]
  - Asthenia [Unknown]
  - Neutrophil count increased [Unknown]
  - Thrombocytopenia [Recovered/Resolved]
  - High density lipoprotein decreased [Unknown]
  - Monocyte count increased [Unknown]
  - Platelet count decreased [Unknown]
  - Blood sodium decreased [Unknown]
  - Protein total increased [Unknown]
  - Blood albumin increased [Unknown]
  - White blood cell count increased [Unknown]
  - Atrial fibrillation [Recovered/Resolved]
  - Eosinophil count decreased [Unknown]
  - Haematocrit decreased [Unknown]
  - Blood bilirubin unconjugated increased [Unknown]
  - Alpha 2 globulin decreased [Unknown]

NARRATIVE: CASE EVENT DATE: 20171219
